FAERS Safety Report 7897898-1 (Version None)
Quarter: 2011Q4

REPORT INFORMATION
  Report Type: 
  Country: None (occurrence: None)
  Receive Date: 20111103
  Receipt Date: 20111020
  Transmission Date: 20120403
  Serious: Yes (Hospitalization)
  Sender: FDA-Public Use
  Company Number: 2011S1001465

PATIENT
  Age: 70 Year
  Sex: Female

DRUGS (3)
  1. LIVALO [Suspect]
     Dosage: 2 MG;1X;PO
     Route: 048
     Dates: start: 20110701
  2. LOPID [Concomitant]
  3. GABAPENTIN [Concomitant]

REACTIONS (3)
  - GASTROOESOPHAGEAL REFLUX DISEASE [None]
  - ABDOMINAL DISCOMFORT [None]
  - SUPRAVENTRICULAR TACHYCARDIA [None]
